FAERS Safety Report 23679963 (Version 3)
Quarter: 2024Q2

REPORT INFORMATION
  Report Type: Report from Study
  Country: EG (occurrence: EG)
  Receive Date: 20240327
  Receipt Date: 20240410
  Transmission Date: 20240716
  Serious: No
  Sender: FDA-Public Use
  Company Number: EG-SANDOZ-SDZ2024EG032059

PATIENT
  Age: 6 Year
  Sex: Female
  Weight: 20 kg

DRUGS (3)
  1. OMNITROPE [Suspect]
     Active Substance: SOMATROPIN
     Indication: Growth retardation
     Dosage: 0.7 INCREASED TO 1 MG
     Route: 058
     Dates: start: 20220509
  2. MACROFURAN [Concomitant]
     Indication: Vesicoureteric reflux
     Dosage: TABLET/ DAY SINCE BIRTH
     Route: 048
  3. OMEGA PLUS [Concomitant]
     Indication: Vesicoureteric reflux
     Dosage: 2 TABLETS/ DAY SINCE SHE WAS 4 YEARS
     Route: 048

REACTIONS (9)
  - Injection site swelling [Not Recovered/Not Resolved]
  - Injection site pain [Not Recovered/Not Resolved]
  - Off label use [Unknown]
  - Medication error [Unknown]
  - Needle issue [Unknown]
  - Multiple use of single-use product [Unknown]
  - Wrong technique in device usage process [Unknown]
  - Product administration error [Unknown]
  - Device issue [Unknown]

NARRATIVE: CASE EVENT DATE: 20220509
